FAERS Safety Report 6037880-2 (Version None)
Quarter: 2009Q1

REPORT INFORMATION
  Report Type: 
  Country: None (occurrence: None)
  Receive Date: 20090115
  Receipt Date: 20090109
  Transmission Date: 20090719
  Serious: Yes (Other)
  Sender: FDA-Public Use
  Company Number: GB-BRISTOL-MYERS SQUIBB COMPANY-14467666

PATIENT
  Age: 3 Decade
  Sex: Male

DRUGS (1)
  1. VIDEX [Suspect]

REACTIONS (1)
  - PORTAL HYPERTENSION [None]
